FAERS Safety Report 7659935-9 (Version None)
Quarter: 2011Q3

REPORT INFORMATION
  Report Type: 
  Country: None (occurrence: None)
  Receive Date: 20110805
  Receipt Date: 20110729
  Transmission Date: 20111222
  Serious: Yes (Hospitalization, Other)
  Sender: FDA-Public Use
  Company Number: US-BAYER-2011-019302

PATIENT
  Age: 33 Year
  Sex: Female
  Weight: 55.782 kg

DRUGS (6)
  1. VICODIN [Concomitant]
  2. ADVIL LIQUI-GELS [Concomitant]
  3. MOTRIN [Concomitant]
  4. YASMIN [Suspect]
     Indication: PREMENSTRUAL SYNDROME
     Dosage: UNK
     Route: 048
     Dates: start: 20090223, end: 20090503
  5. BENZTROPINE MESYLATE [Concomitant]
  6. CYCLOBENZAPRINE [Concomitant]

REACTIONS (16)
  - EYE MOVEMENT DISORDER [None]
  - CHEST PAIN [None]
  - DEEP VEIN THROMBOSIS [None]
  - EMOTIONAL DISTRESS [None]
  - ANGER [None]
  - HEADACHE [None]
  - LETHARGY [None]
  - THROMBOSIS [None]
  - OEDEMA PERIPHERAL [None]
  - ASTHENIA [None]
  - ABORTION SPONTANEOUS [None]
  - PAIN [None]
  - FEAR [None]
  - INJURY [None]
  - BURNING SENSATION [None]
  - STRESS [None]
